FAERS Safety Report 6184808-0 (Version None)
Quarter: 2009Q2

REPORT INFORMATION
  Report Type: 
  Country: None (occurrence: None)
  Receive Date: 20090508
  Receipt Date: 20090429
  Transmission Date: 20091009
  Serious: Yes (Other)
  Sender: FDA-Public Use
  Company Number: CA-ELI_LILLY_AND_COMPANY-CA200903007082

PATIENT
  Sex: Male

DRUGS (2)
  1. ZYPREXA [Suspect]
  2. VITAMINS [Concomitant]

REACTIONS (3)
  - CONVULSION [None]
  - HEPATIC ENZYME INCREASED [None]
  - THROMBOCYTOPENIA [None]
